FAERS Safety Report 12221281 (Version 1)
Quarter: 2016Q1

REPORT INFORMATION
  Report Type: Spontaneous
  Country: HR (occurrence: HR)
  Receive Date: 20160330
  Receipt Date: 20160330
  Transmission Date: 20160526
  Serious: Yes (Other)
  Sender: FDA-Public Use
  Company Number: HR-GLAXOSMITHKLINE-HR2016040126

PATIENT
  Age: 45 Year
  Sex: Male
  Weight: 77 kg

DRUGS (2)
  1. NORMABEL [Concomitant]
     Active Substance: DIAZEPAM
     Indication: EPILEPSY
     Dosage: 5 MG, UNK
     Route: 048
     Dates: start: 20140107, end: 20160310
  2. LAMICTAL [Suspect]
     Active Substance: LAMOTRIGINE
     Indication: EPILEPSY
     Dosage: 50 MG, BID
     Route: 048
     Dates: start: 20140107, end: 20160308

REACTIONS (1)
  - Nocturia [Recovered/Resolved]

NARRATIVE: CASE EVENT DATE: 20151025
